FAERS Safety Report 5938903-9 (Version None)
Quarter: 2008Q4

REPORT INFORMATION
  Report Type: 
  Country: None (occurrence: None)
  Receive Date: 20081103
  Receipt Date: 20081001
  Transmission Date: 20090506
  Serious: No
  Sender: FDA-Public Use
  Company Number: US-BAYER-200835529NA

PATIENT
  Age: 17 Year
  Sex: Female

DRUGS (1)
  1. OCELLA TABLETS [Suspect]
     Indication: ORAL CONTRACEPTION
     Route: 048
     Dates: start: 20080901

REACTIONS (1)
  - METRORRHAGIA [None]
